FAERS Safety Report 8819330 (Version 1)
Quarter: 2012Q4

REPORT INFORMATION
  Report Type: Report from Study
  Country: US (occurrence: US)
  Receive Date: 20121001
  Receipt Date: 20121001
  Transmission Date: 20130627
  Serious: Yes (Hospitalization)
  Sender: FDA-Public Use
  Company Number: US-ABBOTT-12P-163-0980266-00

PATIENT
  Age: 52 None
  Sex: Male
  Weight: 63.56 kg

DRUGS (13)
  1. HUMIRA [Suspect]
     Indication: CROHN^S DISEASE
     Route: 050
     Dates: start: 20120904, end: 20120904
  2. HUMIRA [Suspect]
     Route: 050
     Dates: start: 20120918, end: 20120918
  3. MULTIVITAMINS [Concomitant]
     Indication: VITAMIN SUPPLEMENTATION
  4. VITAMIN D3 [Concomitant]
     Indication: PRODUCT USED FOR UNKNOWN INDICATION
  5. PENTASA [Concomitant]
     Indication: PRODUCT USED FOR UNKNOWN INDICATION
  6. OMEPRAZOLE [Concomitant]
     Indication: PRODUCT USED FOR UNKNOWN INDICATION
  7. METOPROLOL [Concomitant]
     Indication: PRODUCT USED FOR UNKNOWN INDICATION
  8. LOPRESSOR [Concomitant]
     Indication: COMPLEX REGIONAL PAIN SYNDROME
  9. LOPRESSOR [Concomitant]
     Indication: SYNCOPE
  10. PAROXETINE [Concomitant]
     Indication: COMPLEX REGIONAL PAIN SYNDROME
  11. PAROXETINE [Concomitant]
     Indication: SYNCOPE
  12. PENTASA [Concomitant]
     Indication: CROHN^S DISEASE
  13. OMEPRAZOLE [Concomitant]
     Indication: GASTROOESOPHAGEAL REFLUX DISEASE

REACTIONS (15)
  - Accident at home [Recovered/Resolved]
  - Syncope [Recovered/Resolved]
  - Fall [Recovered/Resolved]
  - Contusion [Not Recovered/Not Resolved]
  - Periorbital contusion [Not Recovered/Not Resolved]
  - Wound [Not Recovered/Not Resolved]
  - Musculoskeletal chest pain [Not Recovered/Not Resolved]
  - Injury [Not Recovered/Not Resolved]
  - Scar [Unknown]
  - Dehydration [Recovered/Resolved]
  - Fatigue [Not Recovered/Not Resolved]
  - Muscle spasms [Not Recovered/Not Resolved]
  - Feeling cold [Recovered/Resolved]
  - Bradycardia [Unknown]
  - Blood pressure orthostatic [Unknown]
